FAERS Safety Report 16571971 (Version 3)
Quarter: 2019Q4

REPORT INFORMATION
  Report Type: Spontaneous
  Country: US (occurrence: US)
  Receive Date: 20190715
  Receipt Date: 20191015
  Transmission Date: 20200122
  Serious: Yes (Other)
  Sender: FDA-Public Use
  Company Number: PHEH2019US029188

PATIENT
  Sex: Female

DRUGS (1)
  1. PROMACTA [Suspect]
     Active Substance: ELTROMBOPAG OLAMINE
     Indication: IRON DEFICIENCY ANAEMIA
     Dosage: 25 MG, QD
     Route: 048
     Dates: start: 20190528

REACTIONS (3)
  - Dizziness [Unknown]
  - Nausea [Unknown]
  - Menorrhagia [Unknown]
